FAERS Safety Report 11062380 (Version 1)
Quarter: 2015Q2

REPORT INFORMATION
  Report Type: Spontaneous
  Country: GB (occurrence: None)
  Receive Date: 20150422
  Receipt Date: 20150422
  Transmission Date: 20150821
  Serious: Yes (Other)
  Sender: FDA-Public Use
  Company Number: 20151143

PATIENT
  Sex: Female

DRUGS (1)
  1. METOJECT (METHOTREXATE DISODIUM) [Suspect]
     Active Substance: METHOTREXATE SODIUM
     Dosage: (GALENICAL FORM // ROUTE OF ADMINISTRATION): SOLUTION FOR INJECTION IN PRE-FILLED SYRING //

REACTIONS (2)
  - Drug dose omission [None]
  - Surgery [None]
